FAERS Safety Report 4343973-8 (Version None)
Quarter: 2004Q2

REPORT INFORMATION
  Report Type: 
  Country: None (occurrence: None)
  Receive Date: 20040422
  Receipt Date: 20040329
  Transmission Date: 20050107
  Serious: Yes (Other)
  Sender: FDA-Public Use
  Company Number: FI-ROCHE-363332

PATIENT
  Age: 57 Year
  Sex: Male
  Weight: 74 kg

DRUGS (17)
  1. XELODA [Suspect]
     Route: 048
     Dates: start: 20040204
  2. XELODA [Suspect]
     Dosage: .
     Route: 048
     Dates: start: 20040331
  3. METHOTREXATE [Concomitant]
     Route: 042
     Dates: start: 20040105, end: 20040119
  4. FLUOROURACIL [Concomitant]
     Route: 042
     Dates: start: 20040106, end: 20040119
  5. CALCIUM FOLINATE [Concomitant]
     Route: 048
     Dates: start: 20040107, end: 20040119
  6. ORADEXON TAB [Concomitant]
     Indication: NAUSEA
     Dosage: GIVEN 19 JANUARY, 2004 AND SINCE 7 FEBRUARY, 2002.
     Route: 042
     Dates: start: 20020207
  7. ZOFRAN [Concomitant]
     Indication: NAUSEA
     Dosage: GIVEN 19 JANUARY, 2004, AND SINCE 7 FEBRUARY, 2002.
     Route: 042
     Dates: start: 20020207
  8. ATROVENT [Concomitant]
     Indication: ASTHMA
     Route: 055
     Dates: start: 19921223
  9. SYMBICORT TURBUHALER [Concomitant]
     Indication: ASTHMA
     Route: 055
     Dates: start: 20020919
  10. METRONIDAZOLE [Concomitant]
     Indication: NEUTROPENIC SEPSIS
     Route: 042
     Dates: start: 20031214, end: 20031222
  11. ROCEPHALIN [Concomitant]
     Indication: NEUTROPENIC SEPSIS
     Route: 042
     Dates: start: 20031214, end: 20031222
  12. METOPRAM [Concomitant]
     Indication: NAUSEA
     Dates: start: 20020201
  13. MYCOSTATIN [Concomitant]
     Indication: ORAL FUNGAL INFECTION
  14. ACETAMINOPHEN [Concomitant]
     Indication: PAIN
  15. LAXOBERON [Concomitant]
     Indication: CONSTIPATION
  16. TAVANIC [Concomitant]
     Indication: NEUTROPENIC SEPSIS
     Dosage: GIVEN FOR POST-TREATMENT OF NEUTROPENIC SEPSIS.
     Dates: start: 20031222, end: 20031226
  17. DIFLUCAN [Concomitant]
     Indication: NEUTROPENIC SEPSIS
     Dosage: GIVEN FOR POST-TREATMENT OF NEUTROPENIC SEPSIS.
     Dates: start: 20031222, end: 20031226

REACTIONS (3)
  - BALANITIS [None]
  - C-REACTIVE PROTEIN INCREASED [None]
  - PYREXIA [None]
